FAERS Safety Report 7868898-2 (Version None)
Quarter: 2011Q4

REPORT INFORMATION
  Report Type: 
  Country: None (occurrence: None)
  Receive Date: 20111028
  Receipt Date: 20101221
  Transmission Date: 20120403
  Serious: Yes (Other)
  Sender: FDA-Public Use
  Company Number: US-AMGEN-USASP2010010596

PATIENT
  Age: 59 Year
  Sex: Female
  Weight: 87.982 kg

DRUGS (3)
  1. ENBREL [Suspect]
     Indication: PRODUCT USED FOR UNKNOWN INDICATION
     Dosage: 50 MG, QWK
     Route: 058
  2. ATENOLOL [Concomitant]
     Dosage: 100 MG, UNK
  3. DYAZIDE [Concomitant]
     Dosage: 37.5 UNK, UNK

REACTIONS (1)
  - LYMPHOMA [None]
